FAERS Safety Report 16291931 (Version 2)
Quarter: 2021Q1

REPORT INFORMATION
  Report Type: Spontaneous
  Country: US (occurrence: US)
  Receive Date: 20190509
  Receipt Date: 20210226
  Transmission Date: 20210419
  Serious: Yes (Death, Other)
  Sender: FDA-Public Use
  Company Number: US-ASTRAZENECA-2019SE62981

PATIENT
  Age: 74 Year
  Sex: Female
  Weight: 77.1 kg

DRUGS (64)
  1. HYDROCHLOROTHIAZIDE. [Concomitant]
     Active Substance: HYDROCHLOROTHIAZIDE
  2. TOBROMYCIN [Concomitant]
  3. DOXICYCLINE [Concomitant]
  4. HYDRALAZINE [Concomitant]
     Active Substance: HYDRALAZINE HYDROCHLORIDE
  5. PHENAZOPYRIDINE. [Concomitant]
     Active Substance: PHENAZOPYRIDINE
  6. TORSEMIDE. [Concomitant]
     Active Substance: TORSEMIDE
  7. FEXOFENADINE [Concomitant]
     Active Substance: FEXOFENADINE HYDROCHLORIDE
  8. VERAPAMIL [Concomitant]
     Active Substance: VERAPAMIL HYDROCHLORIDE
  9. NEXIUM [Suspect]
     Active Substance: ESOMEPRAZOLE MAGNESIUM
     Indication: GASTROOESOPHAGEAL REFLUX DISEASE
     Route: 048
  10. PREVACID [Suspect]
     Active Substance: LANSOPRAZOLE
     Indication: GASTROOESOPHAGEAL REFLUX DISEASE
     Route: 065
     Dates: start: 2007
  11. LEXAPRO [Concomitant]
     Active Substance: ESCITALOPRAM OXALATE
     Indication: ANXIETY
     Dates: start: 2008, end: 2011
  12. MECLIZINE [Concomitant]
     Active Substance: MECLIZINE HYDROCHLORIDE
  13. SINGULAIR [Concomitant]
     Active Substance: MONTELUKAST SODIUM
  14. FLUTICASONE. [Concomitant]
     Active Substance: FLUTICASONE
  15. PREVIDENT [Concomitant]
     Active Substance: SODIUM FLUORIDE
  16. NEXIUM [Suspect]
     Active Substance: ESOMEPRAZOLE MAGNESIUM
     Indication: GASTROOESOPHAGEAL REFLUX DISEASE
     Dosage: GENERIC
     Route: 065
     Dates: start: 201501, end: 201510
  17. PHENAZOPYRIDINE. [Concomitant]
     Active Substance: PHENAZOPYRIDINE
  18. CLINDAMYCIN. [Concomitant]
     Active Substance: CLINDAMYCIN
  19. OXYCODONE [Concomitant]
     Active Substance: OXYCODONE
  20. DIOVAN [Concomitant]
     Active Substance: VALSARTAN
  21. ZINC SULFATE. [Concomitant]
     Active Substance: ZINC SULFATE
  22. METRONIDAZOLE. [Concomitant]
     Active Substance: METRONIDAZOLE
  23. METRONIDAZOLE. [Concomitant]
     Active Substance: METRONIDAZOLE
  24. LASIX [Concomitant]
     Active Substance: FUROSEMIDE
  25. FUROSEMIDE. [Concomitant]
     Active Substance: FUROSEMIDE
  26. ALPRAZOLAM. [Concomitant]
     Active Substance: ALPRAZOLAM
     Indication: ANXIETY
     Dates: start: 20080526, end: 20110124
  27. LANTUS [Concomitant]
     Active Substance: INSULIN GLARGINE
     Indication: DIABETES MELLITUS
     Dates: start: 200805, end: 2019
  28. HUMALOG [Concomitant]
     Active Substance: INSULIN LISPRO
     Indication: DIABETES MELLITUS
     Dates: start: 2019
  29. MICARDIS [Concomitant]
     Active Substance: TELMISARTAN
     Indication: HYPERTENSION
     Dates: start: 201002, end: 201205
  30. CARVEDILOL. [Concomitant]
     Active Substance: CARVEDILOL
  31. ONDASETRON [Concomitant]
     Active Substance: ONDANSETRON
  32. TERCONAZOLE. [Concomitant]
     Active Substance: TERCONAZOLE
  33. AVAPRO [Concomitant]
     Active Substance: IRBESARTAN
  34. NEXIUM [Suspect]
     Active Substance: ESOMEPRAZOLE MAGNESIUM
     Indication: GASTROOESOPHAGEAL REFLUX DISEASE
     Dosage: MR
     Route: 048
     Dates: start: 20120815
  35. CALCITRIOL. [Concomitant]
     Active Substance: CALCITRIOL
     Indication: CALCIUM DEFICIENCY
     Dates: start: 20170928, end: 2019
  36. HYDROCODONE [Concomitant]
     Active Substance: HYDROCODONE
  37. MOXIFLOXACIN. [Concomitant]
     Active Substance: MOXIFLOXACIN
  38. NYSTATIN. [Concomitant]
     Active Substance: NYSTATIN
  39. ALBUTEROL. [Concomitant]
     Active Substance: ALBUTEROL
  40. FERROUS SULFATE. [Concomitant]
     Active Substance: FERROUS SULFATE
  41. TOLTERODINE [Concomitant]
     Active Substance: TOLTERODINE
  42. ANASTROZOLE. [Concomitant]
     Active Substance: ANASTROZOLE
  43. LEVAQUIN [Concomitant]
     Active Substance: LEVOFLOXACIN
  44. AVANDIA [Concomitant]
     Active Substance: ROSIGLITAZONE MALEATE
  45. CIPROFLOXACIN. [Concomitant]
     Active Substance: CIPROFLOXACIN
  46. ZOLPIDEM [Concomitant]
     Active Substance: ZOLPIDEM TARTRATE
  47. ESCITALOPRAM [Concomitant]
     Active Substance: ESCITALOPRAM OXALATE
  48. HYOSCYAMINE. [Concomitant]
     Active Substance: HYOSCYAMINE
  49. VENTOLIN [Concomitant]
     Active Substance: ALBUTEROL SULFATE
  50. GUAIFENESIN. [Concomitant]
     Active Substance: GUAIFENESIN
  51. CYANOCOBALAMIN. [Concomitant]
     Active Substance: CYANOCOBALAMIN
  52. GLIPIZIDE. [Concomitant]
     Active Substance: GLIPIZIDE
  53. AMBIEN [Concomitant]
     Active Substance: ZOLPIDEM TARTRATE
  54. PREVACID [Suspect]
     Active Substance: LANSOPRAZOLE
     Indication: GASTROOESOPHAGEAL REFLUX DISEASE
     Dosage: MR
     Route: 065
     Dates: start: 20071212
  55. LIPITOR [Concomitant]
     Active Substance: ATORVASTATIN CALCIUM
     Indication: BLOOD CHOLESTEROL INCREASED
     Dates: start: 2008, end: 2019
  56. PROCRIT [Concomitant]
     Active Substance: ERYTHROPOIETIN
     Indication: ANAEMIA
     Dates: start: 2017, end: 2019
  57. VITAMIN D [Concomitant]
     Active Substance: VITAMIN D NOS
     Indication: SUPPLEMENTATION THERAPY
  58. CEPHALEXIN. [Concomitant]
     Active Substance: CEPHALEXIN
  59. LISINOPRIL. [Concomitant]
     Active Substance: LISINOPRIL
     Indication: BLOOD CHOLESTEROL INCREASED
     Dates: end: 2019
  60. VITAMIN B12 [Concomitant]
     Active Substance: CYANOCOBALAMIN
     Indication: SUPPLEMENTATION THERAPY
  61. ANASTROZOLE. [Concomitant]
     Active Substance: ANASTROZOLE
  62. CEFDINIR. [Concomitant]
     Active Substance: CEFDINIR
  63. MORPHINE SULFATE. [Concomitant]
     Active Substance: MORPHINE SULFATE
  64. BENZONATATE. [Concomitant]
     Active Substance: BENZONATATE

REACTIONS (6)
  - Acute kidney injury [Unknown]
  - Nephrogenic anaemia [Unknown]
  - Diabetes mellitus [Fatal]
  - End stage renal disease [Fatal]
  - Hyperparathyroidism secondary [Unknown]
  - Chronic kidney disease [Unknown]

NARRATIVE: CASE EVENT DATE: 2011
